FAERS Safety Report 8429549-1 (Version None)
Quarter: 2012Q2

REPORT INFORMATION
  Report Type: 
  Country: None (occurrence: None)
  Receive Date: 20120604
  Receipt Date: 20120518
  Transmission Date: 20120825
  Serious: Yes (Death)
  Sender: FDA-Public Use
  Company Number: 217608

PATIENT

DRUGS (2)
  1. INNOHEP [Suspect]
     Indication: EMBOLISM VENOUS
  2. ASPIRIN [Concomitant]

REACTIONS (1)
  - PULMONARY EMBOLISM [None]
